FAERS Safety Report 9921633 (Version 1)
Quarter: 2014Q1

REPORT INFORMATION
  Report Type: Spontaneous
  Country: BR (occurrence: BR)
  Receive Date: 20140225
  Receipt Date: 20140225
  Transmission Date: 20141002
  Serious: Yes (Hospitalization, Other)
  Sender: FDA-Public Use
  Company Number: BR-SA-2014SA019296

PATIENT
  Age: 82 Year
  Sex: Male

DRUGS (6)
  1. APIDRA SOLOSTAR [Suspect]
     Indication: DIABETES MELLITUS
     Route: 065
  2. LANTUS [Suspect]
     Indication: PRODUCT USED FOR UNKNOWN INDICATION
     Route: 058
     Dates: start: 201401
  3. INSULIN, REGULAR [Suspect]
     Indication: PRODUCT USED FOR UNKNOWN INDICATION
     Route: 065
     Dates: end: 201401
  4. PREDNISONE [Suspect]
     Indication: RENAL TRANSPLANT
     Dosage: GRADUAL DOSE DECREASED
     Route: 065
  5. PREDNISONE [Suspect]
     Indication: RENAL TRANSPLANT
     Route: 065
  6. SOLOSTAR [Concomitant]

REACTIONS (6)
  - Haemodialysis [Unknown]
  - Renal transplant [Unknown]
  - Muscle rigidity [Unknown]
  - Gait disturbance [Unknown]
  - Panic disorder [Unknown]
  - Dyspnoea [Unknown]
